FAERS Safety Report 10672298 (Version 2)
Quarter: 2014Q4

REPORT INFORMATION
  Report Type: Spontaneous
  Country: CN (occurrence: CN)
  Receive Date: 20141223
  Receipt Date: 20141223
  Transmission Date: 20150529
  Serious: Yes (Death)
  Sender: FDA-Public Use
  Company Number: CN-GLAXOSMITHKLINE-CN2014GSK028953

PATIENT

DRUGS (2)
  1. POTASSIUM SODIUM DEHYDROANDROAN DROGRAPHOLIDE SUCCINATE INJECTION [Suspect]
     Active Substance: POTASSIUM SODIUM DEHYDROANDROGRAPHOLIDE SUCCINATE
     Indication: PRODUCT USED FOR UNKNOWN INDICATION
     Dosage: UNK
     Route: 042
     Dates: start: 20141125
  2. ZINACEF [Suspect]
     Active Substance: CEFUROXIME SODIUM
     Indication: PRODUCT USED FOR UNKNOWN INDICATION
     Dosage: UNK
     Route: 042
     Dates: start: 20141125

REACTIONS (2)
  - Dermatitis allergic [Fatal]
  - Dyspnoea [Fatal]

NARRATIVE: CASE EVENT DATE: 20141125
